FAERS Safety Report 17444202 (Version 3)
Quarter: 2020Q3

REPORT INFORMATION
  Report Type: Spontaneous
  Country: US (occurrence: US)
  Receive Date: 20200221
  Receipt Date: 20200717
  Transmission Date: 20201102
  Serious: No
  Sender: FDA-Public Use
  Company Number: US-009507513-2001USA008958

PATIENT
  Age: 20 Year
  Sex: Female
  Weight: 127.3 kg

DRUGS (1)
  1. NEXPLANON [Suspect]
     Active Substance: ETONOGESTREL
     Indication: CONTRACEPTION
     Dosage: 1 ROD EVERY 3 YEARS
     Route: 059
     Dates: start: 20190219

REACTIONS (8)
  - Rhinitis allergic [Unknown]
  - No adverse event [Unknown]
  - Migraine [Unknown]
  - Obesity [Unknown]
  - Device breakage [Not Recovered/Not Resolved]
  - Nonalcoholic fatty liver disease [Unknown]
  - Device placement issue [Not Recovered/Not Resolved]
  - Asthma [Unknown]

NARRATIVE: CASE EVENT DATE: 20200121
